FAERS Safety Report 11702215 (Version 3)
Quarter: 2016Q3

REPORT INFORMATION
  Report Type: Spontaneous
  Country: DK (occurrence: DK)
  Receive Date: 20151105
  Receipt Date: 20160816
  Transmission Date: 20161109
  Serious: Yes (Other)
  Sender: FDA-Public Use
  Company Number: DK-PFIZER INC-2015372882

PATIENT
  Sex: Female

DRUGS (2)
  1. CELEBRA [Suspect]
     Active Substance: CELECOXIB
     Indication: ARTHRITIS
     Dosage: 100 MG, UNK
     Route: 048
     Dates: start: 200710, end: 200911
  2. CELEBRA [Suspect]
     Active Substance: CELECOXIB
     Indication: RHEUMATOID ARTHRITIS

REACTIONS (1)
  - Cerebral thrombosis [Unknown]
